FAERS Safety Report 4578659-8 (Version None)
Quarter: 2005Q1

REPORT INFORMATION
  Report Type: 
  Country: None (occurrence: None)
  Receive Date: 20050209
  Receipt Date: 20050209
  Transmission Date: 20050727
  Serious: Yes (Death)
  Sender: FDA-Public Use
  Company Number: None

PATIENT
  Sex: Female
  Weight: 37.7 kg

DRUGS (3)
  1. RITUXIMAB [Suspect]
     Indication: CHRONIC LYMPHOCYTIC LEUKAEMIA
     Dosage: 500MG/M2
     Dates: start: 20040804, end: 20041124
  2. FLUDARABINE PHOSPHATE [Suspect]
     Indication: CHRONIC LYMPHOCYTIC LEUKAEMIA
     Dosage: 20MG/M
     Dates: start: 20040805, end: 20041028
  3. CYTOXAN [Suspect]
     Indication: CHRONIC LYMPHOCYTIC LEUKAEMIA
     Dosage: 150M
     Dates: start: 20040805, end: 20041028

REACTIONS (4)
  - ASTHENIA [None]
  - DEHYDRATION [None]
  - NEUTROPENIA [None]
  - WEIGHT DECREASED [None]
